FAERS Safety Report 7825907-4 (Version None)
Quarter: 2011Q4

REPORT INFORMATION
  Report Type: 
  Country: None (occurrence: None)
  Receive Date: 20111019
  Receipt Date: 20111006
  Transmission Date: 20120403
  Serious: Yes (Hospitalization, Other)
  Sender: FDA-Public Use
  Company Number: US-ROCHE-665408

PATIENT
  Sex: Female
  Weight: 61.2 kg

DRUGS (6)
  1. SOTRET [Suspect]
     Route: 048
     Dates: start: 20060425, end: 20060525
  2. ACCUTANE [Suspect]
     Indication: ACNE
     Route: 048
     Dates: start: 20010312, end: 20010412
  3. ACCUTANE [Suspect]
     Route: 048
     Dates: start: 20020625, end: 20020830
  4. AMNESTEEM [Suspect]
     Indication: ACNE
     Route: 065
     Dates: start: 20060318, end: 20060418
  5. IBUPROFEN (ADVIL) [Concomitant]
  6. SOTRET [Suspect]
     Indication: ACNE
     Route: 048
     Dates: start: 20060209, end: 20060309

REACTIONS (12)
  - MUSCULOSKELETAL PAIN [None]
  - OESOPHAGITIS [None]
  - CROHN'S DISEASE [None]
  - APHTHOUS STOMATITIS [None]
  - ACUTE FEBRILE NEUTROPHILIC DERMATOSIS [None]
  - PYODERMA GANGRENOSUM [None]
  - ARTHRITIS [None]
  - COLITIS ULCERATIVE [None]
  - INFLAMMATORY BOWEL DISEASE [None]
  - INTESTINAL OBSTRUCTION [None]
  - ANAEMIA [None]
  - DEPRESSION [None]
